FAERS Safety Report 7543494-5 (Version None)
Quarter: 2011Q2

REPORT INFORMATION
  Report Type: 
  Country: None (occurrence: None)
  Receive Date: 20110613
  Receipt Date: 20110602
  Transmission Date: 20111010
  Serious: Yes (Hospitalization, Other)
  Sender: FDA-Public Use
  Company Number: US-NOVOPROD-329287

PATIENT
  Sex: Female
  Weight: 120.64 kg

DRUGS (1)
  1. VICTOZA [Suspect]
     Indication: DIABETES MELLITUS
     Dosage: 0.6 MG, QD
     Route: 058
     Dates: start: 20100716, end: 20110101

REACTIONS (5)
  - HYPERTHYROIDISM [None]
  - FATIGUE [None]
  - ABDOMINAL PAIN [None]
  - THYROID NEOPLASM [None]
  - HYPOTHYROIDISM [None]
